FAERS Safety Report 26069549 (Version 1)
Quarter: 2025Q4

REPORT INFORMATION
  Report Type: Spontaneous
  Country: EU (occurrence: EU)
  Receive Date: 20251120
  Receipt Date: 20251120
  Transmission Date: 20260117
  Serious: Yes (Hospitalization)
  Sender: RANBAXY
  Company Number: EU-AFSSAPS-BX2025001150

PATIENT
  Age: 85 Year
  Sex: Female

DRUGS (10)
  1. CLOPIDOGREL [Suspect]
     Active Substance: CLOPIDOGREL BISULFATE
     Indication: Angioplasty
     Dosage: 75 MILLIGRAM, DAILY
     Route: 048
     Dates: start: 20250613, end: 20250714
  2. FUROSEMIDE [Suspect]
     Active Substance: FUROSEMIDE
     Indication: Cardiac failure
     Dosage: 40 MILLIGRAM, DAILY
     Route: 048
     Dates: start: 20250616, end: 20250619
  3. FUROSEMIDE [Suspect]
     Active Substance: FUROSEMIDE
     Dosage: 40 MILLIGRAM, DAILY
     Route: 048
     Dates: start: 20250624
  4. CANDESARTAN [Suspect]
     Active Substance: CANDESARTAN
     Indication: Acute myocardial infarction
     Dosage: 8 MILLIGRAM, DAILY
     Route: 048
     Dates: start: 20250613, end: 20250717
  5. ELIQUIS [Concomitant]
     Active Substance: APIXABAN
     Indication: Acute myocardial infarction
     Dosage: 2.5 MILLIGRAM, BID
     Route: 048
     Dates: start: 20250613
  6. AMIODARONE [Concomitant]
     Active Substance: AMIODARONE
     Indication: Acute myocardial infarction
     Dosage: 2 DOSAGE FORM, UNK
     Route: 048
     Dates: start: 20250715, end: 20250715
  7. NEBIVOLOL [Concomitant]
     Active Substance: NEBIVOLOL
     Indication: Product used for unknown indication
     Dosage: UNK
     Route: 065
  8. EPLERENONE [Concomitant]
     Active Substance: EPLERENONE
     Indication: Product used for unknown indication
     Dosage: UNK
     Route: 065
  9. ATORVASTATIN [Concomitant]
     Active Substance: ATORVASTATIN
     Indication: Product used for unknown indication
     Dosage: UNK
     Route: 065
  10. LERCANIDIPINE [Concomitant]
     Active Substance: LERCANIDIPINE
     Indication: Product used for unknown indication
     Dosage: UNK
     Route: 065

REACTIONS (2)
  - Agranulocytosis [Recovered/Resolved]
  - Aplastic anaemia [Recovering/Resolving]

NARRATIVE: CASE EVENT DATE: 20250715
